FAERS Safety Report 5269092-4 (Version None)
Quarter: 2007Q1

REPORT INFORMATION
  Report Type: 
  Country: None (occurrence: None)
  Receive Date: 20070319
  Receipt Date: 20070308
  Transmission Date: 20070707
  Serious: Yes (Hospitalization)
  Sender: FDA-Public Use
  Company Number: US-ROCHE-486247

PATIENT
  Age: 59 Year
  Sex: Female

DRUGS (6)
  1. TAMIFLU [Suspect]
     Route: 065
     Dates: start: 20070213
  2. PROCRIT [Suspect]
     Route: 065
     Dates: start: 20070208, end: 20070213
  3. PROCRIT [Suspect]
     Route: 065
     Dates: end: 20060615
  4. PREDNISONE [Concomitant]
  5. NORVASC [Concomitant]
  6. IRON [Concomitant]

REACTIONS (4)
  - ANAEMIA [None]
  - HYPERSENSITIVITY [None]
  - HYPOTENSION [None]
  - SYNCOPE [None]
